FAERS Safety Report 7787033-2 (Version None)
Quarter: 2011Q3

REPORT INFORMATION
  Report Type: 
  Country: None (occurrence: None)
  Receive Date: 20110929
  Receipt Date: 20110919
  Transmission Date: 20111222
  Serious: Yes (Hospitalization)
  Sender: FDA-Public Use
  Company Number: US-BAYER-2011-036804

PATIENT
  Age: 23 Year
  Sex: Female
  Weight: 65.76 kg

DRUGS (6)
  1. YAZ [Suspect]
     Dosage: UNK
     Dates: start: 20080801, end: 20090401
  2. ZITHROMAX [Concomitant]
     Dosage: 250 MG, QD
  3. PROTONIX [Concomitant]
  4. ZITHROMAX [Concomitant]
     Indication: UPPER RESPIRATORY TRACT INFECTION
     Dosage: 500 MG, QD
  5. NAPROXEN [Concomitant]
     Indication: MUSCULOSKELETAL PAIN
     Dosage: 500 MG, UNK
  6. CHROMAGEN [ASCORBIC ACID,CYANOCOBALAMIN,FERROUS FUMARATE,FOLIC ACI [Concomitant]

REACTIONS (5)
  - INJURY [None]
  - EMOTIONAL DISTRESS [None]
  - PAIN [None]
  - DEEP VEIN THROMBOSIS [None]
  - PULMONARY EMBOLISM [None]
